FAERS Safety Report 7378624-1 (Version None)
Quarter: 2011Q1

REPORT INFORMATION
  Report Type: 
  Country: None (occurrence: None)
  Receive Date: 20110328
  Receipt Date: 20110302
  Transmission Date: 20110831
  Serious: No
  Sender: FDA-Public Use
  Company Number: US-B.I. PHARMACEUTICALS,INC./RIDGEFIELD-2011-BP-01375BP

PATIENT
  Age: 78 Year
  Sex: Male

DRUGS (9)
  1. PRADAXA [Suspect]
     Indication: ATRIAL FIBRILLATION
     Dosage: 300 MG
     Route: 048
     Dates: start: 20110116
  2. LISINOPRIL [Concomitant]
     Dosage: 20 MG
  3. PRADAXA [Suspect]
     Indication: ANTICOAGULANT THERAPY
  4. GABAPENTIN [Concomitant]
     Dosage: 300 MG
  5. TERAZOSIN [Concomitant]
     Dosage: 1 MG
  6. ASPIRIN [Concomitant]
     Dosage: 81 MG
  7. RANITIDINE [Concomitant]
     Dosage: 150 MG
  8. CARVEDILOL [Concomitant]
     Dosage: 12.5 MG
  9. LIPITOR [Concomitant]
     Dosage: 40 MG

REACTIONS (3)
  - DYSPEPSIA [None]
  - ABDOMINAL PAIN UPPER [None]
  - OESOPHAGEAL PAIN [None]
